FAERS Safety Report 20909744 (Version 3)
Quarter: 2022Q2

REPORT INFORMATION
  Report Type: Spontaneous
  Country: US (occurrence: US)
  Receive Date: 20220603
  Receipt Date: 20220618
  Transmission Date: 20220720
  Serious: No
  Sender: FDA-Public Use
  Company Number: US-TEVA-2022-US-2039695

PATIENT
  Age: 46 Year
  Sex: Female

DRUGS (9)
  1. CINQAIR [Suspect]
     Active Substance: RESLIZUMAB
     Indication: Sneezing
     Route: 042
     Dates: end: 2021
  2. CINQAIR [Suspect]
     Active Substance: RESLIZUMAB
     Indication: Cough
  3. OMEPRAZOLE [Concomitant]
     Active Substance: OMEPRAZOLE
  4. WELLBUTRIN [Concomitant]
     Active Substance: BUPROPION HYDROCHLORIDE
  5. PLENDIL [Concomitant]
     Active Substance: FELODIPINE
  6. VITAMINS [Concomitant]
     Active Substance: VITAMINS
  7. SINGULAIR [Concomitant]
     Active Substance: MONTELUKAST SODIUM
  8. ZYRTEC [Concomitant]
     Active Substance: CETIRIZINE HYDROCHLORIDE
  9. BREO ELLIPTA [Concomitant]
     Active Substance: FLUTICASONE FUROATE\VILANTEROL TRIFENATATE

REACTIONS (2)
  - Drug ineffective [Unknown]
  - Product use in unapproved indication [Unknown]
